FAERS Safety Report 12110591 (Version 1)
Quarter: 2016Q1

REPORT INFORMATION
  Report Type: Spontaneous
  Country: PT (occurrence: PT)
  Receive Date: 20160224
  Receipt Date: 20160224
  Transmission Date: 20160526
  Serious: Yes (Hospitalization, Other)
  Sender: FDA-Public Use
  Company Number: PHHY2016PT023295

PATIENT
  Sex: Male

DRUGS (4)
  1. DIGOXIN. [Suspect]
     Active Substance: DIGOXIN
     Indication: ATRIAL FLUTTER
  2. DIGOXIN. [Suspect]
     Active Substance: DIGOXIN
     Indication: FOETAL EXPOSURE DURING PREGNANCY
     Dosage: MATERNAL DOSE (MAXIMUM DOSE 0.75 MG ID)
     Route: 064
  3. SOTALOL. [Suspect]
     Active Substance: SOTALOL
     Indication: FOETAL EXPOSURE DURING PREGNANCY
     Dosage: MATERNAL DOSE (MAXIMUM DOSE: 240 MG ID)
     Route: 064
  4. SOTALOL. [Suspect]
     Active Substance: SOTALOL
     Indication: ATRIAL FLUTTER

REACTIONS (6)
  - Pericardial effusion [Unknown]
  - Dilatation ventricular [Unknown]
  - Premature baby [Unknown]
  - Atrial flutter [Recovered/Resolved]
  - Right atrial dilatation [Unknown]
  - Foetal exposure during pregnancy [Unknown]
